FAERS Safety Report 11359253 (Version 1)
Quarter: 2015Q3

REPORT INFORMATION
  Report Type: Spontaneous
  Country: US (occurrence: None)
  Receive Date: 20150807
  Receipt Date: 20150807
  Transmission Date: 20151125
  Serious: Yes (Other)
  Sender: FDA-Public Use
  Company Number: None

PATIENT
  Age: 72 Year
  Sex: Female

DRUGS (13)
  1. FIORICET [Concomitant]
     Active Substance: ACETAMINOPHEN\BUTALBITAL\CAFFEINE
  2. MAGNESIUM [Concomitant]
     Active Substance: MAGNESIUM
  3. DOC-U-LACE [Concomitant]
  4. FOLIC ACID. [Concomitant]
     Active Substance: FOLIC ACID
  5. MULTI-VITAMIN [Concomitant]
     Active Substance: .ALPHA.-TOCOPHEROL ACETATE, DL-\ASCORBIC ACID\CYANOCOBALAMIN\FLUORIDE ION\FOLIC ACID\NIACIN\PYRIDOXINE\RIBOFLAVIN\THIAMINE\VITAMIN A\VITAMIN D
  6. CLONIDINE. [Concomitant]
     Active Substance: CLONIDINE
  7. BENEFIBER [Concomitant]
     Active Substance: STARCH, WHEAT
  8. LOMOTIL [Concomitant]
     Active Substance: ATROPINE SULFATE\DIPHENOXYLATE HYDROCHLORIDE
  9. D-3 [Concomitant]
     Active Substance: CHOLECALCIFEROL
  10. TYLENOL-3 [Concomitant]
  11. PEG [Concomitant]
     Active Substance: POLYETHYLENE GLYCOLS
  12. FLUCONAZOLE. [Suspect]
     Active Substance: FLUCONAZOLE
     Indication: FUNGAL OESOPHAGITIS
     Route: 048
     Dates: start: 20150511, end: 20150727
  13. DIAZAPAM [Concomitant]

REACTIONS (5)
  - Pruritus [None]
  - Burning sensation [None]
  - Rash [None]
  - Fungal infection [None]
  - Disease recurrence [None]

NARRATIVE: CASE EVENT DATE: 20150514
